FAERS Safety Report 8256792-7 (Version None)
Quarter: 2012Q2

REPORT INFORMATION
  Report Type: 
  Country: None (occurrence: None)
  Receive Date: 20120403
  Receipt Date: 20120320
  Transmission Date: 20120825
  Serious: Yes (Other)
  Sender: FDA-Public Use
  Company Number: PHHY2012IT027861

PATIENT
  Sex: Male

DRUGS (6)
  1. CYCLOSPORINE [Suspect]
     Dosage: 2 MG/KG, UNK
  2. CYCLOSPORINE [Suspect]
     Dosage: 4-5 MG/KG, UNK
  3. TACROLIMUS [Suspect]
     Dosage: 0.1 MG/KG, UNK
  4. TACROLIMUS [Suspect]
     Dosage: 0.018 MG/KG, UNK
  5. PREDNISONE TAB [Suspect]
  6. METHYLPREDNISOLONE [Suspect]
     Dosage: 20 MG/KG, FOR THREE TO FIVE TIMES
     Route: 042

REACTIONS (1)
  - CUSHINGOID [None]
